FAERS Safety Report 5542362-8 (Version None)
Quarter: 2007Q4

REPORT INFORMATION
  Report Type: 
  Country: None (occurrence: None)
  Receive Date: 20071210
  Receipt Date: 20071127
  Transmission Date: 20080405
  Serious: Yes (Other)
  Sender: FDA-Public Use
  Company Number: CA-ELI_LILLY_AND_COMPANY-CA200611004281

PATIENT
  Age: 65 Year
  Sex: Female

DRUGS (10)
  1. FORTEO [Suspect]
     Indication: OSTEOPOROSIS
     Dosage: 20 UG, DAILY (1/D)
     Route: 058
     Dates: start: 20060830, end: 20061123
  2. FORTEO [Suspect]
     Dosage: 20 UG, DAILY (1/D)
     Route: 058
     Dates: start: 20061204
  3. FORTEO [Suspect]
     Dosage: 20 UG, DAILY (1/D)
     Route: 058
  4. CALCITE [Concomitant]
  5. LUMIGAN [Concomitant]
     Dosage: UNK, UNK
  6. COSOPT [Concomitant]
  7. EMPRACET [Concomitant]
  8. TIAMOL [Concomitant]
     Dosage: UNK, AS NEEDED
  9. APO-RANITIDINE [Concomitant]
     Dates: start: 20061114
  10. XALATAN [Concomitant]

REACTIONS (2)
  - MALIGNANT MELANOMA [None]
  - RASH [None]
